FAERS Safety Report 19779085 (Version 2)
Quarter: 2023Q2

REPORT INFORMATION
  Report Type: Report from Study
  Country: US (occurrence: US)
  Receive Date: 20210902
  Receipt Date: 20230621
  Transmission Date: 20230721
  Serious: Yes (Hospitalization, Other)
  Sender: FDA-Public Use
  Company Number: US-TAKEDA-2021TUS052551

PATIENT
  Sex: Male

DRUGS (8)
  1. TEDUGLUTIDE [Suspect]
     Active Substance: TEDUGLUTIDE
     Indication: Short-bowel syndrome
     Dosage: 4.7 MILLIGRAM, 1/WEEK
     Route: 058
     Dates: start: 20140303
  2. TEDUGLUTIDE [Suspect]
     Active Substance: TEDUGLUTIDE
     Indication: Short-bowel syndrome
     Dosage: 4.7 MILLIGRAM, 1/WEEK
     Route: 058
     Dates: start: 20140303
  3. TEDUGLUTIDE [Suspect]
     Active Substance: TEDUGLUTIDE
     Indication: Short-bowel syndrome
     Dosage: 4.7 MILLIGRAM, 1/WEEK
     Route: 058
     Dates: start: 20140303
  4. TEDUGLUTIDE [Suspect]
     Active Substance: TEDUGLUTIDE
     Indication: Short-bowel syndrome
     Dosage: 4.7 MILLIGRAM, 1/WEEK
     Route: 058
     Dates: start: 20140303
  5. TEDUGLUTIDE [Suspect]
     Active Substance: TEDUGLUTIDE
     Dosage: 2.25 MILLIGRAM, 1/WEEK
     Route: 058
  6. TEDUGLUTIDE [Suspect]
     Active Substance: TEDUGLUTIDE
     Dosage: 2.25 MILLIGRAM, 1/WEEK
     Route: 058
  7. TEDUGLUTIDE [Suspect]
     Active Substance: TEDUGLUTIDE
     Dosage: 2.25 MILLIGRAM, 1/WEEK
     Route: 058
  8. TEDUGLUTIDE [Suspect]
     Active Substance: TEDUGLUTIDE
     Dosage: 2.25 MILLIGRAM, 1/WEEK
     Route: 058

REACTIONS (2)
  - Arthritis infective [Recovering/Resolving]
  - Vascular device infection [Recovering/Resolving]
